FAERS Safety Report 19278209 (Version 2)
Quarter: 2021Q2

REPORT INFORMATION
  Report Type: Spontaneous
  Country: US (occurrence: US)
  Receive Date: 20210520
  Receipt Date: 20210527
  Transmission Date: 20210717
  Serious: Yes (Other)
  Sender: FDA-Public Use
  Company Number: US-PFIZER INC-2021547013

PATIENT
  Age: 17 Year
  Sex: Male

DRUGS (3)
  1. METHOTREXATE SODIUM. [Suspect]
     Active Substance: METHOTREXATE SODIUM
     Indication: T-CELL LYMPHOMA
     Dosage: UNK
     Route: 037
  2. ASPARAGINASE [Concomitant]
     Active Substance: ASPARAGINASE
     Indication: T-CELL LYMPHOMA
     Dosage: UNK
  3. METHOTREXATE SODIUM. [Suspect]
     Active Substance: METHOTREXATE SODIUM
     Dosage: UNK
     Route: 042

REACTIONS (2)
  - Toxic encephalopathy [Recovered/Resolved]
  - Neurotoxicity [Recovered/Resolved]
